FAERS Safety Report 20647528 (Version 1)
Quarter: 2022Q1

REPORT INFORMATION
  Report Type: Other
  Country: CA (occurrence: CA)
  Receive Date: 20220329
  Receipt Date: 20220329
  Transmission Date: 20220424
  Serious: Yes (Other)
  Sender: FDA-Public Use
  Company Number: CA-APOTEX-2022AP005158

PATIENT
  Age: 88 Year
  Sex: Male
  Weight: 150 kg

DRUGS (1)
  1. CLOPIDOGREL [Suspect]
     Active Substance: CLOPIDOGREL BISULFATE
     Indication: Cardiac disorder
     Dosage: 75 MILLIGRAM, QD
     Route: 065

REACTIONS (3)
  - Dermatitis allergic [Recovered/Resolved]
  - Joint swelling [Recovered/Resolved]
  - Urticaria [Recovered/Resolved]
